FAERS Safety Report 16781739 (Version 1)
Quarter: 2019Q3

REPORT INFORMATION
  Report Type: Spontaneous
  Country: US (occurrence: US)
  Receive Date: 20190906
  Receipt Date: 20190906
  Transmission Date: 20191005
  Serious: Yes (Hospitalization)
  Sender: FDA-Public Use
  Company Number: US-BAXTER-2019BAX017386

PATIENT
  Age: 68 Year
  Sex: Female

DRUGS (1)
  1. VANCOMYCIN INJECTION, USP [Suspect]
     Active Substance: VANCOMYCIN
     Indication: PROPHYLAXIS
     Dosage: 1.0 MG/0.1 ML
     Route: 050

REACTIONS (2)
  - Haemorrhagic vasculitis [Recovered/Resolved]
  - Retinal vascular occlusion [Recovered/Resolved]
